FAERS Safety Report 10143279 (Version 1)
Quarter: 2014Q2

REPORT INFORMATION
  Report Type: Spontaneous
  Country: FR (occurrence: FR)
  Receive Date: 20140430
  Receipt Date: 20140430
  Transmission Date: 20141212
  Serious: Yes (Death, Hospitalization, Other)
  Sender: FDA-Public Use
  Company Number: FR-ASTRAZENECA-2014SE29328

PATIENT
  Age: 27804 Day
  Sex: Female

DRUGS (6)
  1. INEXIUM [Suspect]
     Route: 048
  2. FLAGYL [Suspect]
     Route: 048
     Dates: start: 20131214, end: 20131217
  3. ROCEPHINE [Suspect]
     Route: 048
     Dates: start: 20131214, end: 20131217
  4. LASILIX [Suspect]
     Route: 048
  5. COUMADINE [Suspect]
     Route: 048
  6. CARDENSIEL [Suspect]
     Route: 048

REACTIONS (8)
  - Rash maculo-papular [Fatal]
  - Pruritus [Fatal]
  - Eosinophilia [Fatal]
  - Cholangitis [Unknown]
  - Renal failure [Unknown]
  - Interstitial lung disease [Unknown]
  - General physical health deterioration [Unknown]
  - International normalised ratio increased [Unknown]
